FAERS Safety Report 6997030-2 (Version None)
Quarter: 2010Q3

REPORT INFORMATION
  Report Type: 
  Country: None (occurrence: None)
  Receive Date: 20100918
  Receipt Date: 20090908
  Transmission Date: 20110219
  Serious: No
  Sender: FDA-Public Use
  Company Number: US-WYE-H10922109

PATIENT
  Age: 54 Year
  Sex: Female

DRUGS (2)
  1. PREMPRO [Suspect]
     Indication: HOT FLUSH
     Dosage: LOWEST STRENGTH, THEN  MOVED TO THE INTERMEDIATE STRENGTH AND THEN TO HIGHEST STRENGTH
     Route: 048
  2. PREMPRO [Suspect]
     Dosage: 0.3/1.5 MG
     Route: 048
     Dates: start: 20090801

REACTIONS (2)
  - DRUG INEFFECTIVE [None]
  - NIGHT SWEATS [None]
